FAERS Safety Report 16106337 (Version 5)
Quarter: 2024Q1

REPORT INFORMATION
  Report Type: Spontaneous
  Country: US (occurrence: US)
  Receive Date: 20190322
  Receipt Date: 20240207
  Transmission Date: 20240410
  Serious: Yes (Other)
  Sender: FDA-Public Use
  Company Number: None

PATIENT
  Sex: Female
  Weight: 77.098 kg

DRUGS (14)
  1. FIRDAPSE [Suspect]
     Active Substance: AMIFAMPRIDINE PHOSPHATE
     Indication: Myasthenic syndrome
     Dosage: 10-20 MG, AS NEEDED UP TO 80 MG DAILY DEPENDING ON SYMPTOMS, TAKING MAXIMUM ALLOWABLE AMOUNT OF 80 M
     Route: 048
     Dates: start: 20190207, end: 2019
  2. FIRDAPSE [Suspect]
     Active Substance: AMIFAMPRIDINE PHOSPHATE
     Dosage: 100 MG PER DAY IN DIVIDED DOSES
     Route: 048
     Dates: start: 20190306
  3. FIRDAPSE [Suspect]
     Active Substance: AMIFAMPRIDINE PHOSPHATE
     Dosage: 10 TABLETS TOTAL DAILY IN DIVIDED DOSES
     Route: 048
     Dates: start: 20220304
  4. NUVIGIL [Concomitant]
     Active Substance: ARMODAFINIL
     Indication: Myasthenic syndrome
     Dosage: 75 MILLIGRAM, PRN
     Route: 065
     Dates: start: 2012
  5. KLONOPIN [Concomitant]
     Active Substance: CLONAZEPAM
     Indication: Product used for unknown indication
     Dosage: 25 MILLIGRAM, PRN
     Route: 065
  6. MESTINON [Concomitant]
     Active Substance: PYRIDOSTIGMINE BROMIDE
     Indication: Product used for unknown indication
     Dosage: 60 MILLIGRAM, BID
     Route: 065
  7. PROZAC [Concomitant]
     Active Substance: FLUOXETINE HYDROCHLORIDE
     Indication: Depression
     Dosage: 20 MILLIGRAM, QD
     Route: 065
  8. MELATONIN [Concomitant]
     Active Substance: MELATONIN
     Indication: Sleep disorder
     Dosage: UNK, AT NIGHT
     Route: 065
     Dates: start: 2018
  9. PROBIOTICS NOS [Concomitant]
     Active Substance: PROBIOTICS NOS
     Indication: Product used for unknown indication
     Dosage: UNKNOWN
     Route: 065
  10. MAGNESIUM CALCITRATE [Concomitant]
     Indication: Product used for unknown indication
     Dosage: UNKNOWN
     Route: 065
  11. PEPCID [Concomitant]
     Active Substance: FAMOTIDINE
     Indication: Product used for unknown indication
     Dosage: UNKNOWN
     Route: 065
  12. ZANTAC [Concomitant]
     Active Substance: RANITIDINE HYDROCHLORIDE
     Indication: Product used for unknown indication
     Dosage: UNKNOWN
     Route: 065
  13. MOTRIN [Concomitant]
     Active Substance: IBUPROFEN
     Indication: Product used for unknown indication
     Dosage: UNKNOWN
     Route: 065
  14. VITAMINS [Concomitant]
     Active Substance: VITAMINS
     Indication: Product used for unknown indication
     Dosage: UNKNOWN
     Route: 065

REACTIONS (5)
  - Impaired quality of life [Not Recovered/Not Resolved]
  - Thirst [Not Recovered/Not Resolved]
  - Depression [Not Recovered/Not Resolved]
  - Drug ineffective [Not Recovered/Not Resolved]
  - Off label use [Unknown]

NARRATIVE: CASE EVENT DATE: 20190101
